FAERS Safety Report 16101704 (Version 5)
Quarter: 2019Q4

REPORT INFORMATION
  Report Type: Spontaneous
  Country: PL (occurrence: PL)
  Receive Date: 20190321
  Receipt Date: 20191209
  Transmission Date: 20200122
  Serious: Yes (Hospitalization, Other)
  Sender: FDA-Public Use
  Company Number: PL-MYLANLABS-2019M1024207

PATIENT
  Age: 27 Year
  Sex: Female

DRUGS (3)
  1. DEXAMETHASONE. [Concomitant]
     Active Substance: DEXAMETHASONE
     Dosage: UNK, TOTAL
     Route: 065
  2. PREGABALIN. [Suspect]
     Active Substance: PREGABALIN
     Indication: MIXED ANXIETY AND DEPRESSIVE DISORDER
     Dosage: 3000 MILLIGRAM, QD (RECEIVED DURING WHOLE PREGNANCY AND THEREAFTER)
     Route: 065
  3. TRAMADOL. [Suspect]
     Active Substance: TRAMADOL
     Indication: PRODUCT USED FOR UNKNOWN INDICATION
     Dosage: 750 MILLIGRAM, QD
     Route: 065

REACTIONS (17)
  - Abdominal pain [Unknown]
  - Anxiety [Unknown]
  - Tremor [Unknown]
  - Treatment noncompliance [Unknown]
  - Depression [Unknown]
  - Depressed mood [Unknown]
  - Diarrhoea [Unknown]
  - Overdose [Unknown]
  - Dyspnoea [Unknown]
  - Off label use [Unknown]
  - Drug dependence [Unknown]
  - Drug abuse [Unknown]
  - Drug withdrawal syndrome [Unknown]
  - Insomnia [Unknown]
  - Sleep disorder [Unknown]
  - Initial insomnia [Not Recovered/Not Resolved]
  - Maternal exposure during pregnancy [Recovered/Resolved]
